FAERS Safety Report 24462580 (Version 1)
Quarter: 2024Q4

REPORT INFORMATION
  Report Type: Spontaneous
  Country: US (occurrence: None)
  Receive Date: 20241018
  Receipt Date: 20241018
  Transmission Date: 20250115
  Serious: Yes (unspecified)
  Sender: Public
  Company Number: None

PATIENT
  Age: 66 Year
  Sex: Female
  Weight: 56.25 kg

DRUGS (1)
  1. ALENDRONATE [Suspect]
     Active Substance: ALENDRONATE SODIUM
     Indication: Osteoporosis
     Dosage: OTHER QUANTITY : 1 TABLET(S);?OTHER FREQUENCY : Q WEEK;?
     Route: 048
     Dates: start: 20200415, end: 20241001

REACTIONS (3)
  - Myalgia [None]
  - Arthralgia [None]
  - Rash [None]

NARRATIVE: CASE EVENT DATE: 20230721
